FAERS Safety Report 4650236-X (Version None)
Quarter: 2005Q2

REPORT INFORMATION
  Report Type: 
  Country: None (occurrence: None)
  Receive Date: 20050428
  Receipt Date: 20050414
  Transmission Date: 20051028
  Serious: Yes (Other)
  Sender: FDA-Public Use
  Company Number: 2005BI002086

PATIENT
  Age: 58 Year
  Sex: Female

DRUGS (2)
  1. AVONEX [Suspect]
     Indication: MULTIPLE SCLEROSIS
     Dosage: 30 UG; QW; IM
     Route: 030
     Dates: start: 19991206
  2. AVONEX [Suspect]
     Dosage: 30 UG; QW; IM
     Route: 030

REACTIONS (2)
  - MALIGNANT MELANOMA IN SITU [None]
  - SKIN CANCER [None]
